FAERS Safety Report 8561779-0 (Version None)
Quarter: 2012Q3

REPORT INFORMATION
  Report Type: 
  Country: None (occurrence: None)
  Receive Date: 20120802
  Receipt Date: 20120730
  Transmission Date: 20120928
  Serious: Yes (Other)
  Sender: FDA-Public Use
  Company Number: PHHY2012US065309

PATIENT
  Age: 61 Year
  Sex: Male

DRUGS (15)
  1. HYDROCHLOROTHIAZIDE [Suspect]
     Dosage: 25 MG, DAILY
  2. CALCIUM CARBONATE [Suspect]
     Dosage: 1000 MG (EQUIVALENT TO 400 MG OF ELEMENTAL CALCIUM/TABLET)
  3. DESIPRAMINE [Concomitant]
     Dosage: 75 MG/DAY
  4. DEPAKOTE [Concomitant]
     Dosage: 500 MG,FOUR TIMES DAILY
  5. JANUVIA [Concomitant]
     Dosage: 100 MG, DAILY
  6. UROXATRAL [Concomitant]
     Dosage: 10 MG, DAILY
  7. DILTIAZEM [Concomitant]
     Dosage: 240 MG/DAY
  8. MIRAPEX [Concomitant]
     Dosage: 0.25 MG, DAILY
  9. LOVASTATIN [Concomitant]
     Dosage: 40 MG, DAILY
  10. VITAMIN D [Concomitant]
     Dosage: 1000 U, DAILY
  11. METFORMIN HYDROCHLORIDE [Concomitant]
     Dosage: 500 MG, BID
  12. ZOLPIDEM [Concomitant]
     Dosage: 10 MG, UNK
  13. WELLBUTRIN [Concomitant]
     Dosage: 300 MG, DAILY
  14. LISINOPRIL [Suspect]
     Dosage: 10 MG/DAY
  15. GLIPIZIDE [Concomitant]
     Dosage: 2.5 MG, DAILY

REACTIONS (8)
  - HYPERCALCAEMIA [None]
  - VITAMIN A DECREASED [None]
  - ELECTROCARDIOGRAM ST SEGMENT ABNORMAL [None]
  - PARATHYROID HORMONE-RELATED PROTEIN ABNORMAL [None]
  - SINUS TACHYCARDIA [None]
  - METABOLIC ALKALOSIS [None]
  - RENAL FAILURE [None]
  - ANGIOTENSIN CONVERTING ENZYME DECREASED [None]
